FAERS Safety Report 8394145 (Version 2)
Quarter: 2013Q3

REPORT INFORMATION
  Report Type: Report from Study
  Country: US (occurrence: US)
  Receive Date: 20120207
  Receipt Date: 20130719
  Transmission Date: 20140515
  Serious: Yes (Hospitalization, Other)
  Sender: FDA-Public Use
  Company Number: PHHO2011US14634

PATIENT
  Age: 64 Year
  Sex: Female

DRUGS (5)
  1. AFINITOR [Suspect]
     Indication: THYROID CANCER
     Dosage: 5 MG, QD
     Route: 048
     Dates: start: 20110623, end: 20111206
  2. SORAFENIB [Suspect]
     Indication: THYROID CANCER
     Dosage: 400 MG IN THE MORNING AND 400 MG IN THE EVENING
     Route: 048
     Dates: start: 20110623
  3. SORAFENIB [Suspect]
     Dosage: 400 MG IN THE MORNING AND 200 MG IN THE EVENING
     Route: 048
  4. SORAFENIB [Suspect]
     Dosage: NO TREATMENT
     Dates: start: 20110804, end: 20110807
  5. SORAFENIB [Suspect]
     Dosage: 400 MG IN THE MORNING AND 200 MG IN THE EVENING
     Route: 048
     Dates: start: 20110808, end: 20111206

REACTIONS (10)
  - Cerebrovascular accident [Recovering/Resolving]
  - Anaemia [Recovering/Resolving]
  - Hyperglycaemia [Recovering/Resolving]
  - Diarrhoea [Unknown]
  - Hypocalcaemia [Recovering/Resolving]
  - Hypotension [Unknown]
  - Skin infection [Unknown]
  - Hypophosphataemia [Recovered/Resolved]
  - Peripheral motor neuropathy [Recovering/Resolving]
  - Lymphocyte count decreased [Recovering/Resolving]
